FAERS Safety Report 17888680 (Version 1)
Quarter: 2020Q2

REPORT INFORMATION
  Report Type: Spontaneous
  Country: US (occurrence: US)
  Receive Date: 20200611
  Receipt Date: 20200611
  Transmission Date: 20200714
  Serious: No
  Sender: FDA-Public Use
  Company Number: None

PATIENT
  Age: 69 Year
  Sex: Female
  Weight: 67.5 kg

DRUGS (4)
  1. BENADRYL [Concomitant]
     Active Substance: DIPHENHYDRAMINE HYDROCHLORIDE
  2. AMBIEN [Concomitant]
     Active Substance: ZOLPIDEM TARTRATE
  3. ADVAIR HFA [Suspect]
     Active Substance: FLUTICASONE PROPIONATE\SALMETEROL XINAFOATE
     Indication: BRONCHIAL HYPERREACTIVITY
     Dosage: ?          QUANTITY:1 INHALER;?
     Route: 055
     Dates: start: 20200421, end: 20200425
  4. MAGNESIUM [Concomitant]
     Active Substance: MAGNESIUM

REACTIONS (12)
  - Nervousness [None]
  - Tremor [None]
  - Dysphonia [None]
  - Lung disorder [None]
  - Palpitations [None]
  - Malaise [None]
  - Asthenia [None]
  - Impaired work ability [None]
  - Depressed mood [None]
  - Irritability [None]
  - Heart rate irregular [None]
  - Feeling abnormal [None]

NARRATIVE: CASE EVENT DATE: 20200610
